FAERS Safety Report 19201996 (Version 2)
Quarter: 2021Q2

REPORT INFORMATION
  Report Type: Spontaneous
  Country: BG (occurrence: BG)
  Receive Date: 20210430
  Receipt Date: 20210520
  Transmission Date: 20210717
  Serious: Yes (Other)
  Sender: FDA-Public Use
  Company Number: BG-SA-2021SA143198

PATIENT
  Age: 76 Year
  Sex: Male

DRUGS (7)
  1. INSULIN [Concomitant]
     Active Substance: INSULIN NOS
  2. TAMSULOSINA [Suspect]
     Active Substance: TAMSULOSIN HYDROCHLORIDE
     Indication: BENIGN PROSTATIC HYPERPLASIA
     Dosage: 0.4 MG, QD
     Dates: start: 2011
  3. OMBITASVIR [Interacting]
     Active Substance: OMBITASVIR
     Indication: HEPATIC CIRRHOSIS
     Dosage: 0.4 MG, EVERY OTHER DAY
     Dates: start: 201501
  4. PARITAPREVIR [Interacting]
     Active Substance: PARITAPREVIR
     Indication: HEPATIC CIRRHOSIS
     Dates: start: 201501
  5. RITONAVIR. [Interacting]
     Active Substance: RITONAVIR
     Indication: LUPOID HEPATIC CIRRHOSIS
     Dates: start: 201501
  6. DASABUVIR [Interacting]
     Active Substance: DASABUVIR
     Indication: HEPATIC CIRRHOSIS
     Dates: start: 201501
  7. RIBAVARIN [Interacting]
     Active Substance: RIBAVIRIN
     Indication: HEPATIC CIRRHOSIS
     Dosage: 1000 MG, QD
     Dates: start: 201501

REACTIONS (6)
  - Total bile acids increased [Recovered/Resolved]
  - Liver injury [Recovered/Resolved]
  - Drug interaction [Recovered/Resolved]
  - Hepatocellular carcinoma [Recovered/Resolved]
  - Hyperbilirubinaemia [Recovered/Resolved]
  - Prothrombin time prolonged [Recovered/Resolved]
